FAERS Safety Report 6600614-4 (Version None)
Quarter: 2010Q1

REPORT INFORMATION
  Report Type: 
  Country: None (occurrence: None)
  Receive Date: 20100223
  Receipt Date: 20100223
  Transmission Date: 20100710
  Serious: Yes (Hospitalization)
  Sender: FDA-Public Use
  Company Number: None

PATIENT
  Age: 65 Year
  Sex: Male
  Weight: 68.04 kg

DRUGS (2)
  1. METHOTREXATE [Suspect]
     Indication: ANTINUCLEAR ANTIBODY POSITIVE
     Dosage: 6 TAB QWEEK PO
     Route: 048
     Dates: start: 20090406, end: 20090422
  2. HYDROXYCHLOROQUINE SULFATE [Suspect]
     Dosage: 200 MG BID PO
     Route: 048
     Dates: start: 20090406, end: 20090422

REACTIONS (5)
  - ANEURYSM [None]
  - DEHYDRATION [None]
  - FEEDING DISORDER [None]
  - RENAL FAILURE [None]
  - STOMATITIS [None]
